FAERS Safety Report 7170335-0 (Version None)
Quarter: 2010Q4

REPORT INFORMATION
  Report Type: 
  Country: None (occurrence: None)
  Receive Date: 20101217
  Receipt Date: 20101214
  Transmission Date: 20110411
  Serious: Yes (Hospitalization)
  Sender: FDA-Public Use
  Company Number: FR-ROCHE-739915

PATIENT
  Sex: Female

DRUGS (6)
  1. RIVOTRIL [Suspect]
     Indication: EPILEPSY
     Route: 048
  2. RIVOTRIL [Interacting]
     Dosage: RECENT INCREASE OF DOSAGE
     Route: 048
  3. RIVOTRIL [Interacting]
     Dosage: DOSAGE PROGRESSIVELY DECREASED
     Route: 048
  4. CODOLIPRANE [Interacting]
     Indication: PAIN
     Route: 048
  5. ZOCOR [Concomitant]
     Route: 048
  6. KARDEGIC [Concomitant]
     Route: 048

REACTIONS (3)
  - DRUG INTERACTION [None]
  - LOSS OF CONSCIOUSNESS [None]
  - MALAISE [None]
